FAERS Safety Report 12561636 (Version 1)
Quarter: 2016Q3

REPORT INFORMATION
  Report Type: Spontaneous
  Country: US (occurrence: US)
  Receive Date: 20160715
  Receipt Date: 20160715
  Transmission Date: 20161109
  Serious: No
  Sender: FDA-Public Use
  Company Number: US-IGSA-GTI003586

PATIENT
  Age: 57 Year
  Sex: Male
  Weight: 70 kg

DRUGS (11)
  1. HEPARIN [Concomitant]
     Active Substance: HEPARIN SODIUM
  2. MOTRIN [Concomitant]
     Active Substance: IBUPROFEN
  3. BENADRYL [Concomitant]
     Active Substance: DIPHENHYDRAMINE HYDROCHLORIDE
  4. HYDROXYZINE [Concomitant]
     Active Substance: HYDROXYZINE\HYDROXYZINE HYDROCHLORIDE
  5. HIZENTRA [Concomitant]
     Active Substance: HUMAN IMMUNOGLOBULIN G
  6. PREDNISONE. [Concomitant]
     Active Substance: PREDNISONE
  7. GAMUNEX-C [Suspect]
     Active Substance: HUMAN IMMUNOGLOBULIN G
     Route: 042
     Dates: start: 20150924
  8. XANAX [Concomitant]
     Active Substance: ALPRAZOLAM
  9. TPA [Concomitant]
     Active Substance: ALTEPLASE
  10. GAMUNEX-C [Suspect]
     Active Substance: HUMAN IMMUNOGLOBULIN G
     Route: 042
     Dates: start: 20150827
  11. GAMUNEX-C [Suspect]
     Active Substance: HUMAN IMMUNOGLOBULIN G
     Route: 042
     Dates: start: 20150827

REACTIONS (11)
  - Arthralgia [Recovered/Resolved]
  - Swelling [Recovered/Resolved]
  - Blister [Recovering/Resolving]
  - Blood immunoglobulin E increased [Recovered/Resolved]
  - Headache [Recovered/Resolved]
  - Heart rate increased [Recovered/Resolved]
  - Hypersensitivity [Recovered/Resolved]
  - Diarrhoea [Recovered/Resolved]
  - Fatigue [Recovered/Resolved]
  - Rash [Recovering/Resolving]
  - Nausea [Recovered/Resolved]
